FAERS Safety Report 6329880-X (Version None)
Quarter: 2009Q3

REPORT INFORMATION
  Report Type: 
  Country: None (occurrence: None)
  Receive Date: 20090826
  Receipt Date: 20090721
  Transmission Date: 20100115
  Serious: Yes (Hospitalization)
  Sender: FDA-Public Use
  Company Number: US-BAXTER-2009BH011653

PATIENT
  Age: 47 Year
  Sex: Male
  Weight: 85 kg

DRUGS (2)
  1. SODIUM CHLORIDE 0.9% IN PLASTIC CONTAINER [Suspect]
     Indication: MEDICATION DILUTION
     Route: 042
     Dates: start: 20090713, end: 20090713
  2. NOVOLIN R [Suspect]
     Indication: BLOOD GLUCOSE INCREASED
     Route: 042
     Dates: start: 20090713, end: 20090713

REACTIONS (3)
  - DEVICE MALFUNCTION [None]
  - INCORRECT DRUG ADMINISTRATION RATE [None]
  - OVERDOSE [None]
